FAERS Safety Report 8115733-3 (Version None)
Quarter: 2012Q1

REPORT INFORMATION
  Report Type: 
  Country: None (occurrence: None)
  Receive Date: 20120206
  Receipt Date: 20120125
  Transmission Date: 20120608
  Serious: Yes (Other)
  Sender: FDA-Public Use
  Company Number: FR-ROCHE-1023009

PATIENT
  Sex: Male
  Weight: 75 kg

DRUGS (9)
  1. TENORMIN [Concomitant]
  2. OMEXEL [Concomitant]
  3. VEMURAFENIB [Suspect]
     Indication: MALIGNANT MELANOMA
     Route: 048
     Dates: start: 20110914
  4. PERINDOPRIL ERBUMINE [Concomitant]
  5. PLAVIX [Concomitant]
  6. ASPIRIN [Concomitant]
  7. JANUMET [Concomitant]
  8. EZETIMIBE [Concomitant]
     Indication: HYPERCHOLESTEROLAEMIA
     Route: 048
  9. NEXIUM [Concomitant]

REACTIONS (1)
  - SQUAMOUS CELL CARCINOMA [None]
